FAERS Safety Report 10251964 (Version 1)
Quarter: 2014Q2

REPORT INFORMATION
  Report Type: Spontaneous
  Country: US (occurrence: US)
  Receive Date: 20140623
  Receipt Date: 20140623
  Transmission Date: 20141212
  Serious: No
  Sender: FDA-Public Use
  Company Number: US-BAYER-2014-092611

PATIENT
  Age: 61 Year
  Sex: Female

DRUGS (2)
  1. CIPRO [Suspect]
     Indication: GALLBLADDER DISORDER
     Dosage: UNK
     Route: 048
     Dates: start: 201404
  2. CIPRO [Suspect]
     Indication: HEPATIC ENZYME INCREASED

REACTIONS (4)
  - Vomiting [None]
  - Abdominal pain upper [None]
  - Off label use [None]
  - Nausea [None]
